FAERS Safety Report 14244413 (Version 2)
Quarter: 2017Q4

REPORT INFORMATION
  Report Type: Spontaneous
  Country: ES (occurrence: ES)
  Receive Date: 20171201
  Receipt Date: 20171211
  Transmission Date: 20180321
  Serious: Yes (Other)
  Sender: FDA-Public Use
  Company Number: ES-PFIZER INC-2017512139

PATIENT
  Age: 78 Year
  Sex: Female

DRUGS (17)
  1. PREDNISONE. [Suspect]
     Active Substance: PREDNISONE
     Dosage: 50 MG, UNK LOWERED (50 MG/48 H) AT DAY 63
  2. LEVOFLOXACIN. [Concomitant]
     Active Substance: LEVOFLOXACIN
     Dosage: 500 MG, 1X/DAY (500 MG/24 H NEXT 14 D)
     Route: 042
  3. PROTHROMBIN [Concomitant]
     Active Substance: PROTHROMBIN
     Dosage: UNK
  4. LEVOFLOXACIN. [Concomitant]
     Active Substance: LEVOFLOXACIN
     Indication: MENINGOENCEPHALITIS HERPETIC
     Dosage: 500 MG/12 H 1ST D
     Route: 042
  5. VITAMIN K [Concomitant]
     Active Substance: PHYTONADIONE
     Dosage: 10 MG, UNK
  6. ENOXAPARIN [Concomitant]
     Active Substance: ENOXAPARIN
     Dosage: 0.5 MG/KG, 1X/DAY AT DAY 47
     Route: 058
  7. SERTRALINE [Concomitant]
     Active Substance: SERTRALINE HYDROCHLORIDE
     Indication: DEPRESSION
     Dosage: UNK AT DAY 9
     Route: 048
  8. PREDNISONE. [Suspect]
     Active Substance: PREDNISONE
     Dosage: 5 MG, UNK REDUCED FROM 30 TO 5 MG/48 H AT DAY 89
  9. ENOXAPARIN [Concomitant]
     Active Substance: ENOXAPARIN
     Indication: HAEMORRHAGE
     Dosage: 0.91 MG/KG/24 H AT DAY 1
     Route: 058
  10. IMMUNOGLOBULIN /00025201/ [Concomitant]
     Active Substance: HUMAN IMMUNOGLOBULIN G
     Dosage: 30 G/24 H AT DAY 28
     Route: 042
  11. RITUXIMAB. [Suspect]
     Active Substance: RITUXIMAB
     Indication: ENCEPHALITIS AUTOIMMUNE
     Dosage: 375 MG/M2, WEEKLY AT DAY 50
     Route: 042
  12. ENOXAPARIN [Concomitant]
     Active Substance: ENOXAPARIN
     Dosage: 0.75 MG/KG, 1X/DAY (0.75 MG/KG/24 H) AT DAY 53
     Route: 058
  13. PREDNISONE. [Suspect]
     Active Substance: PREDNISONE
     Dosage: 30 MG, UNK LOWERED (30 MG/48 H) AT DAY 78
  14. METHYLPREDNISOLONE SODIUM SUCCINATE. [Suspect]
     Active Substance: METHYLPREDNISOLONE SODIUM SUCCINATE
     Indication: ENCEPHALITIS AUTOIMMUNE
     Dosage: 500 MG/24 H (AT DAY 28)
     Route: 042
  15. PREDNISONE. [Suspect]
     Active Substance: PREDNISONE
     Indication: ENCEPHALITIS AUTOIMMUNE
     Dosage: 60 MG/24 H (AT DAY 34)
     Route: 048
  16. PREDNISONE. [Suspect]
     Active Substance: PREDNISONE
     Dosage: 50 MG, 1X/DAY LOWERED (50 MG/24 H) AT DAY 57
  17. ACICLOVIR [Concomitant]
     Active Substance: ACYCLOVIR
     Indication: MENINGOENCEPHALITIS HERPETIC
     Dosage: 10 MG/KG/8 H AT DAY 2
     Route: 042

REACTIONS (2)
  - Serratia infection [Recovered/Resolved]
  - Urinary tract infection [Recovered/Resolved]
